FAERS Safety Report 25996781 (Version 1)
Quarter: 2025Q4

REPORT INFORMATION
  Report Type: Spontaneous
  Country: CO (occurrence: CO)
  Receive Date: 20251104
  Receipt Date: 20251104
  Transmission Date: 20260118
  Serious: Yes (Death)
  Sender: ASTELLAS
  Company Number: CO-PFIZER INC-PV202500128060

PATIENT
  Sex: Male

DRUGS (1)
  1. ENFORTUMAB VEDOTIN [Suspect]
     Active Substance: ENFORTUMAB VEDOTIN
     Indication: Transitional cell carcinoma
     Dosage: 1.25 MG, CYCLIC?POWDER FOR SOLUTION FOR INJECTION(201)
     Route: 042
     Dates: start: 20250928

REACTIONS (1)
  - Death [Fatal]

NARRATIVE: CASE EVENT DATE: 20251010
